FAERS Safety Report 4943492-1 (Version None)
Quarter: 2006Q1

REPORT INFORMATION
  Report Type: 
  Country: None (occurrence: None)
  Receive Date: 20060314
  Receipt Date: 20060304
  Transmission Date: 20060701
  Serious: Yes (Other)
  Sender: FDA-Public Use
  Company Number: CH-AMGEN-UK170671

PATIENT
  Sex: Female

DRUGS (8)
  1. NEULASTA [Suspect]
     Indication: CHEMOTHERAPY
     Route: 058
     Dates: start: 20060120, end: 20060120
  2. FLUOROURACIL [Suspect]
     Route: 042
     Dates: start: 20060119, end: 20060119
  3. CYCLOPHOSPHAMIDE [Concomitant]
     Route: 042
     Dates: start: 20060119, end: 20060119
  4. ZOFRAN [Concomitant]
     Route: 042
     Dates: start: 20060119, end: 20060119
  5. ZANTAC [Concomitant]
     Route: 042
     Dates: start: 20060119, end: 20060119
  6. FARMORUBICIN [Concomitant]
     Route: 042
     Dates: start: 20060119, end: 20060119
  7. APREPITANT [Concomitant]
     Route: 048
     Dates: start: 20060119, end: 20060119
  8. FORTECORTIN [Concomitant]
     Route: 042
     Dates: start: 20060119, end: 20060119

REACTIONS (6)
  - COUGH [None]
  - DRUG INTERACTION [None]
  - INFECTION [None]
  - LEUKOPENIA [None]
  - RHINORRHOEA [None]
  - THROMBOCYTOPENIA [None]
